FAERS Safety Report 25191926 (Version 1)
Quarter: 2025Q2

REPORT INFORMATION
  Report Type: Spontaneous
  Country: JP (occurrence: JP)
  Receive Date: 20250414
  Receipt Date: 20250414
  Transmission Date: 20250716
  Serious: Yes (Other)
  Sender: AMGEN
  Company Number: JP-AMGEN-JPNSP2025068709

PATIENT

DRUGS (1)
  1. REPATHA [Suspect]
     Active Substance: EVOLOCUMAB
     Indication: Product used for unknown indication
     Dosage: UNK UNK, Q2WK
     Route: 058
     Dates: start: 20250323

REACTIONS (3)
  - Tremor [Recovered/Resolved]
  - Pyrexia [Recovering/Resolving]
  - Product preparation error [Recovered/Resolved]

NARRATIVE: CASE EVENT DATE: 20250405
